FAERS Safety Report 18181221 (Version 1)
Quarter: 2020Q3

REPORT INFORMATION
  Report Type: Spontaneous
  Country: US (occurrence: US)
  Receive Date: 20200821
  Receipt Date: 20200821
  Transmission Date: 20201103
  Serious: Yes (Other)
  Sender: FDA-Public Use
  Company Number: US-ALLERGAN-2021348US

PATIENT
  Sex: Male
  Weight: 83.9 kg

DRUGS (4)
  1. SYNTHROID [Concomitant]
     Active Substance: LEVOTHYROXINE SODIUM
     Dosage: 100 ?G, QD
  2. HYDROCODONE BITARTRATE;ACETAMINOPHEN UNK [Suspect]
     Active Substance: ACETAMINOPHEN\HYDROCODONE BITARTRATE
     Indication: PAIN
     Dosage: 1?2 TABLETS  EVERY 4?6 HOURS, AS NEEDED
     Route: 048
     Dates: start: 20110615
  3. NORCO [Suspect]
     Active Substance: ACETAMINOPHEN\HYDROCODONE BITARTRATE
     Indication: PAIN
     Dosage: 1?2 TABLETS  EVERY 4?6 HOURS, AS NEEDED
     Route: 048
  4. BACLOFEN. [Concomitant]
     Active Substance: BACLOFEN
     Indication: NECK INJURY
     Dosage: 10 MG, PRN

REACTIONS (5)
  - Intervertebral disc protrusion [Unknown]
  - Pruritus [Not Recovered/Not Resolved]
  - Deafness [Not Recovered/Not Resolved]
  - Tinnitus [Not Recovered/Not Resolved]
  - Intervertebral disc protrusion [Unknown]

NARRATIVE: CASE EVENT DATE: 20110615
